FAERS Safety Report 11344247 (Version 2)
Quarter: 2018Q1

REPORT INFORMATION
  Report Type: Report from Study
  Country: US (occurrence: US)
  Receive Date: 20150806
  Receipt Date: 20180125
  Transmission Date: 20180508
  Serious: Yes (Death)
  Sender: FDA-Public Use
  Company Number: US-JNJFOC-20150515489

PATIENT
  Sex: Female

DRUGS (4)
  1. INVEGA SUSTENNA [Suspect]
     Active Substance: PALIPERIDONE PALMITATE
     Indication: PRODUCT USED FOR UNKNOWN INDICATION
     Route: 030
  2. COGENTIN [Concomitant]
     Active Substance: BENZTROPINE MESYLATE
     Route: 065
     Dates: start: 20150415
  3. INVEGA SUSTENNA [Suspect]
     Active Substance: PALIPERIDONE PALMITATE
     Indication: PRODUCT USED FOR UNKNOWN INDICATION
     Route: 030
  4. LEXAPRO [Concomitant]
     Active Substance: ESCITALOPRAM OXALATE
     Route: 065
     Dates: start: 20150415

REACTIONS (2)
  - Completed suicide [Fatal]
  - Drug ineffective [Unknown]
